FAERS Safety Report 7897316-3 (Version None)
Quarter: 2011Q4

REPORT INFORMATION
  Report Type: 
  Country: None (occurrence: None)
  Receive Date: 20111107
  Receipt Date: 20111028
  Transmission Date: 20120403
  Serious: Yes (Disabling, Other)
  Sender: FDA-Public Use
  Company Number: PHHY2009AU35461

PATIENT
  Sex: Female
  Weight: 75 kg

DRUGS (2)
  1. PREDNISONE [Concomitant]
     Indication: ASTHMA
     Dosage: 20 MG, UNK
  2. ZOLEDRONOC ACID [Suspect]
     Indication: OSTEOPOROSIS
     Dosage: 5 MG, ONCE YEARLY
     Route: 042

REACTIONS (22)
  - MALAISE [None]
  - BLOOD LACTATE DEHYDROGENASE INCREASED [None]
  - HEADACHE [None]
  - FEELING ABNORMAL [None]
  - ARTHRALGIA [None]
  - SKIN ODOUR ABNORMAL [None]
  - LETHARGY [None]
  - OEDEMA PERIPHERAL [None]
  - EYE PAIN [None]
  - DIARRHOEA [None]
  - ALANINE AMINOTRANSFERASE INCREASED [None]
  - LIP SWELLING [None]
  - BLOOD URIC ACID INCREASED [None]
  - GAMMA-GLUTAMYLTRANSFERASE INCREASED [None]
  - NASOPHARYNGITIS [None]
  - OEDEMA MOUTH [None]
  - PARAESTHESIA [None]
  - FEELING OF BODY TEMPERATURE CHANGE [None]
  - FEELING COLD [None]
  - FEELING HOT [None]
  - INFLUENZA LIKE ILLNESS [None]
  - ASPARTATE AMINOTRANSFERASE INCREASED [None]
